FAERS Safety Report 9160228 (Version 3)
Quarter: 2013Q3

REPORT INFORMATION
  Report Type: Report from Study
  Country: CA (occurrence: CA)
  Receive Date: 20130313
  Receipt Date: 20130715
  Transmission Date: 20140515
  Serious: Yes (Other)
  Sender: FDA-Public Use
  Company Number: CA-ROCHE-1200593

PATIENT
  Sex: Female
  Weight: 78 kg

DRUGS (10)
  1. ACTEMRA [Suspect]
     Indication: RHEUMATOID ARTHRITIS
     Route: 042
     Dates: start: 20101109
  2. ACTEMRA [Suspect]
     Route: 065
     Dates: start: 20101207
  3. ACTEMRA [Suspect]
     Route: 065
     Dates: start: 20111028
  4. ACTEMRA [Suspect]
     Route: 065
     Dates: start: 20121016
  5. METHOTREXATE [Concomitant]
  6. MELOXICAM [Concomitant]
  7. PARIET [Concomitant]
  8. AVALIDE [Concomitant]
     Indication: BLOOD PRESSURE
  9. VITAMIN C [Concomitant]
  10. FOLIC ACID [Concomitant]

REACTIONS (2)
  - Weight decreased [Unknown]
  - Viral infection [Unknown]
